FAERS Safety Report 9938670 (Version 3)
Quarter: 2014Q1

REPORT INFORMATION
  Report Type: Spontaneous
  Country: US (occurrence: US)
  Receive Date: 20140303
  Receipt Date: 20140327
  Transmission Date: 20141002
  Serious: Yes (Other)
  Sender: FDA-Public Use
  Company Number: US-JNJFOC-20140213793

PATIENT
  Sex: Female

DRUGS (3)
  1. STELARA [Suspect]
     Indication: PSORIASIS
     Route: 058
  2. HUMIRA [Concomitant]
     Route: 065
  3. ENBREL [Concomitant]
     Route: 065

REACTIONS (1)
  - Colon cancer [Recovered/Resolved]
